FAERS Safety Report 16806241 (Version 4)
Quarter: 2020Q3

REPORT INFORMATION
  Report Type: Report from Study
  Country: TW (occurrence: TW)
  Receive Date: 20190913
  Receipt Date: 20200824
  Transmission Date: 20201102
  Serious: Yes (Other)
  Sender: FDA-Public Use
  Company Number: TW-INCYTE CORPORATION-2019IN007963

PATIENT

DRUGS (14)
  1. JAKAVI [Suspect]
     Active Substance: RUXOLITINIB
     Indication: MYELOFIBROSIS
     Dosage: 15 MG, UNK
     Route: 048
     Dates: start: 20170428
  2. CHLORPHENAMIMINE MALEATE [Concomitant]
     Indication: MYELOFIBROSIS
     Dosage: UNK
     Route: 061
     Dates: start: 20170919, end: 20180821
  3. INDERAL [Concomitant]
     Active Substance: PROPRANOLOL HYDROCHLORIDE
     Indication: HYPERTENSION
     Dosage: 3 DF
     Route: 048
     Dates: start: 20151102, end: 20171120
  4. ULTRACET [Concomitant]
     Active Substance: ACETAMINOPHEN\TRAMADOL HYDROCHLORIDE
     Indication: CHRONIC KIDNEY DISEASE
     Dosage: 1 DF
     Route: 048
     Dates: start: 20171130, end: 20171202
  5. ALPRALINE [Concomitant]
     Active Substance: ALPRAZOLAM
     Indication: INSOMNIA
     Dosage: 1 DF
     Route: 048
     Dates: start: 20150223, end: 20190212
  6. LIDOCAINE HYDROCHLORIDE. [Concomitant]
     Active Substance: LIDOCAINE HYDROCHLORIDE
     Indication: MYELOFIBROSIS
     Dosage: UNK
     Route: 061
     Dates: start: 20170919, end: 20180821
  7. INDOL [Concomitant]
     Active Substance: INDOMETHACIN
     Indication: ARTHRALGIA
     Dosage: UNK
     Route: 061
     Dates: start: 20170428, end: 20170821
  8. PROSCAR [Concomitant]
     Active Substance: FINASTERIDE
     Indication: BENIGN PROSTATIC HYPERPLASIA
     Dosage: 5 MG
     Route: 048
     Dates: start: 20140627
  9. ALLOPURINOL. [Concomitant]
     Active Substance: ALLOPURINOL
     Indication: GOUT
     Dosage: 100 MG
     Route: 048
     Dates: start: 20160519
  10. FUSIDIC ACID [Concomitant]
     Active Substance: FUSIDIC ACID
     Indication: ECZEMA
     Dosage: UNK
     Route: 061
     Dates: start: 20180918
  11. COZAAR [Concomitant]
     Active Substance: LOSARTAN POTASSIUM
     Indication: HYPERTENSION
     Dosage: 100 MG
     Route: 048
     Dates: start: 20141210
  12. METHACIN [Concomitant]
     Indication: CELLULITIS
     Dosage: UNK
     Route: 061
     Dates: start: 20180918
  13. FUCIDIN [Concomitant]
     Active Substance: FUSIDATE SODIUM
     Indication: ECZEMA
     Dosage: UNK
     Route: 061
     Dates: start: 20161011, end: 20170724
  14. HARNALIDGE [Concomitant]
     Active Substance: TAMSULOSIN HYDROCHLORIDE
     Indication: BENIGN PROSTATIC HYPERPLASIA
     Dosage: 0.2 MG
     Route: 048
     Dates: start: 20140627

REACTIONS (9)
  - Vision blurred [Unknown]
  - Cataract [Not Recovered/Not Resolved]
  - Red cell distribution width increased [Unknown]
  - Dry eye [Not Recovered/Not Resolved]
  - Platelet count decreased [Unknown]
  - Intraocular pressure increased [Recovered/Resolved]
  - Eye haemorrhage [Not Recovered/Not Resolved]
  - Conjunctivitis [Not Recovered/Not Resolved]
  - Conjunctival haemorrhage [Unknown]

NARRATIVE: CASE EVENT DATE: 20170519
